FAERS Safety Report 15960517 (Version 1)
Quarter: 2019Q1

REPORT INFORMATION
  Report Type: Spontaneous
  Country: CN (occurrence: CN)
  Receive Date: 20190214
  Receipt Date: 20190214
  Transmission Date: 20190417
  Serious: Yes (Other)
  Sender: FDA-Public Use
  Company Number: CN-LUPIN PHARMACEUTICALS INC.-2019-00745

PATIENT
  Age: 80 Year
  Sex: Male

DRUGS (4)
  1. CYTARABINE. [Suspect]
     Active Substance: CYTARABINE
     Indication: ACUTE MYELOID LEUKAEMIA
     Dosage: 20 GRAM, BID (FOR 8 DAYS)
     Route: 065
  2. DECITABINE. [Suspect]
     Active Substance: DECITABINE
     Indication: ACUTE MYELOID LEUKAEMIA
     Dosage: 25 MILLIGRAM, QD (FOR 3 DAYS)
     Route: 065
  3. EPIRUBICIN [Suspect]
     Active Substance: EPIRUBICIN
     Indication: ACUTE MYELOID LEUKAEMIA
     Dosage: 15 MILLIGRAM, QD (4 DAYS)
     Route: 065
  4. BENZYL PENICILLIN G [Suspect]
     Active Substance: PENICILLIN G
     Indication: SYPHILIS
     Dosage: 24000000 UNIT
     Route: 030

REACTIONS (4)
  - Upper gastrointestinal haemorrhage [Unknown]
  - Bone marrow failure [Recovered/Resolved]
  - Cardiac dysfunction [Unknown]
  - Pneumonia [Unknown]
